FAERS Safety Report 8502631-6 (Version None)
Quarter: 2012Q3

REPORT INFORMATION
  Report Type: 
  Country: None (occurrence: None)
  Receive Date: 20120711
  Receipt Date: 20070226
  Transmission Date: 20120928
  Serious: Yes (Hospitalization)
  Sender: FDA-Public Use
  Company Number: CO-PFIZER INC-2012165182

PATIENT
  Age: 74 Year
  Sex: Male

DRUGS (11)
  1. INSULIN ZINC PROTAMINE INJECTION [Concomitant]
     Dosage: 80-100 UI/ML, TWICE DAILY
  2. FUROSEMIDE [Concomitant]
     Dosage: 40 MG, ONCE DAILY
  3. AMLODIPINE [Concomitant]
     Dosage: 5 MG, ONCE DAILY
  4. PRAZOSIN [Concomitant]
     Dosage: 1 MG, TWICE DAILY
  5. ACETYLSALICYLIC ACID [Concomitant]
     Dosage: 100 MG, ONCE DAILY
  6. METOPROLOL TARTRATE [Concomitant]
     Dosage: 50 MG, TWICE DAILY
  7. ESPIRONOLACTONA [Concomitant]
     Dosage: 25 MG, ONCE DAILY
  8. ISOSORBIDE DINITRATE [Concomitant]
     Dosage: 10 MG, TWICE DAILY
  9. LIPITOR [Suspect]
     Dosage: 10 MG, ONCE DAILY
  10. HYDROCHLOROTHIAZIDE [Suspect]
     Dosage: [QUINAPRIL HCL 20 MG]/ [HYDROCHLOROTHIAZIDE 12.5MG], ONCE DAILY
  11. DIGOXIN [Concomitant]
     Dosage: 0.25 MG, ONCE DAILY

REACTIONS (3)
  - HEADACHE [None]
  - DIABETES MELLITUS [None]
  - DYSPNOEA [None]
